FAERS Safety Report 17858551 (Version 2)
Quarter: 2020Q2

REPORT INFORMATION
  Report Type: Report from Study
  Country: None (occurrence: US)
  Receive Date: 20200604
  Receipt Date: 20200605
  Transmission Date: 20200714
  Serious: No
  Sender: FDA-Public Use
  Company Number: US-US WORLDMEDS, LLC-USW201910-001985

PATIENT
  Age: 64 Year
  Sex: Male

DRUGS (7)
  1. NORTHERA [Concomitant]
     Active Substance: DROXIDOPA
  2. APOKYN [Suspect]
     Active Substance: APOMORPHINE HYDROCHLORIDE
     Indication: PARKINSON^S DISEASE
     Route: 058
     Dates: start: 20190329
  3. RYTARY [Concomitant]
     Active Substance: CARBIDOPA\LEVODOPA
  4. LEXAPRO [Concomitant]
     Active Substance: ESCITALOPRAM OXALATE
  5. APOKYN [Suspect]
     Active Substance: APOMORPHINE HYDROCHLORIDE
     Route: 058
     Dates: start: 20191001
  6. AZILECT [Concomitant]
     Active Substance: RASAGILINE MESYLATE
  7. GOCOVRI [Concomitant]
     Active Substance: AMANTADINE

REACTIONS (3)
  - Abnormal behaviour [Recovering/Resolving]
  - Hallucination [Recovering/Resolving]
  - Confusional state [Recovering/Resolving]

NARRATIVE: CASE EVENT DATE: 20191001
